FAERS Safety Report 9808552 (Version 2)
Quarter: 2014Q1

REPORT INFORMATION
  Report Type: Spontaneous
  Country: US (occurrence: None)
  Receive Date: 20140108
  Receipt Date: 20140122
  Transmission Date: 20141002
  Serious: Yes (Hospitalization)
  Sender: FDA-Public Use
  Company Number: 2013SGN00875

PATIENT
  Age: 66 Year
  Sex: Male
  Weight: 107.7 kg

DRUGS (22)
  1. BRENTUXIMAB VEDOTIN [Suspect]
     Indication: DIFFUSE LARGE B-CELL LYMPHOMA
     Dosage: 1.2 MG/KG Q21D, INTRAVENOUS
     Route: 042
     Dates: start: 20130912, end: 20131205
  2. RITUXIMAB [Suspect]
     Indication: DIFFUSE LARGE B-CELL LYMPHOMA
     Dosage: 375 MG/KG Q21D, INTRAVENOUS
     Route: 042
     Dates: start: 20130912, end: 20131205
  3. CYCLOPHOSPHAMIDE [Suspect]
     Indication: DIFFUSE LARGE B-CELL LYMPHOMA
     Dosage: 750 MG/KG Q21D, INTRAVENOUS
     Route: 042
     Dates: start: 20130912, end: 20131205
  4. DOXORUBICIN [Suspect]
     Indication: DIFFUSE LARGE B-CELL LYMPHOMA
     Dosage: 50 MG/KG Q21D, INTRAVENOUS
     Route: 042
     Dates: start: 20130912, end: 20131205
  5. VINCRISTINE [Suspect]
     Indication: DIFFUSE LARGE B-CELL LYMPHOMA
     Dosage: 1.4 MG/KG Q21D, INTRAVENOUS
     Route: 042
     Dates: start: 20130912, end: 20131205
  6. PREDNISONE [Suspect]
     Indication: DIFFUSE LARGE B-CELL LYMPHOMA
     Dosage: 100 MG, QCYCLE, ORAL
     Route: 048
     Dates: start: 20130912, end: 201312
  7. ASPIRIN (ACETYLSALICYLIC ACID) [Concomitant]
  8. AMLODIPINE (AMLODIPINE MALEATE) [Concomitant]
  9. ATIVAN (LORAZEPAM) [Concomitant]
  10. FUROSEMIDE (FUROSEMIDE SODIUM) [Concomitant]
  11. LISINOPRIL (LISINOPRIL DIHYDRATE) (UNKNOWN [Concomitant]
  12. METFORMIN (METFORMIN) [Concomitant]
  13. ALLOPURINOL (ALLOPURINOL) [Concomitant]
  14. DILTIAZEM (DILTIAZEM HYDROCHLORIDE) [Concomitant]
  15. ALBUTEROL (SALBUTAMOL SULFATE) [Concomitant]
  16. XARELTO (RIVAROXABAN) [Concomitant]
  17. PREDNISONE (PREDNISONE ACETATE) [Concomitant]
  18. NEULASTA (PEGFILGRASTIM) [Concomitant]
  19. LEVAQUIN (LEVOFLOXACIN) [Concomitant]
  20. MAGNESIUM (MAGNESIUM HYDROXIDE) [Concomitant]
  21. ADVAIR (FLUTICASONE PROPIONATE, SALMETEROL XINOFOATE) [Concomitant]
  22. FLOMAX (TAMSULOSIN HYDROCHLORIDE) [Concomitant]

REACTIONS (2)
  - Confusional state [None]
  - Balance disorder [None]
